FAERS Safety Report 9021437 (Version 1)
Quarter: 2013Q1

REPORT INFORMATION
  Report Type: Spontaneous
  Country: US (occurrence: US)
  Receive Date: 20130119
  Receipt Date: 20130119
  Transmission Date: 20140127
  Serious: No
  Sender: FDA-Public Use
  Company Number: US-009507513-1301USA007828

PATIENT
  Sex: Male

DRUGS (2)
  1. RIBAVIRIN [Suspect]
     Indication: CHRONIC HEPATITIS C
     Dosage: UNK
     Dates: start: 20030103, end: 20031205
  2. PEGASYS [Suspect]
     Indication: CHRONIC HEPATITIS C
     Dosage: UNK
     Dates: start: 20030103, end: 20031205

REACTIONS (3)
  - White blood cell count decreased [Unknown]
  - Drug ineffective [Unknown]
  - Anaemia [Unknown]
